FAERS Safety Report 11889554 (Version 2)
Quarter: 2016Q1

REPORT INFORMATION
  Report Type: Spontaneous
  Country: PT (occurrence: PT)
  Receive Date: 20160105
  Receipt Date: 20160108
  Transmission Date: 20160526
  Serious: Yes (Other)
  Sender: FDA-Public Use
  Company Number: PT-BAXTER-2015BAX070814

PATIENT
  Age: 79 Year
  Sex: Male

DRUGS (10)
  1. ENDOXAN [Suspect]
     Active Substance: CYCLOPHOSPHAMIDE
     Indication: NECROTISING SCLERITIS
     Route: 065
  2. CYCLOPENTOLATE [Concomitant]
     Active Substance: CYCLOPENTOLATE
     Indication: NECROTISING SCLERITIS
     Route: 065
  3. ENDOXAN [Suspect]
     Active Substance: CYCLOPHOSPHAMIDE
     Indication: DISEASE PROGRESSION
  4. ENDOXAN [Suspect]
     Active Substance: CYCLOPHOSPHAMIDE
     Indication: SCLEROMALACIA
  5. ENDOXAN [Suspect]
     Active Substance: CYCLOPHOSPHAMIDE
     Indication: OFF LABEL USE
  6. CYCLOPENTOLATE [Concomitant]
     Active Substance: CYCLOPENTOLATE
     Indication: SCLEROMALACIA
  7. BCG [Concomitant]
     Active Substance: BCG VACCINE
     Indication: TRANSITIONAL CELL CARCINOMA
  8. PREDNISOLONE. [Concomitant]
     Active Substance: PREDNISOLONE
     Indication: NECROTISING SCLERITIS
     Route: 047
  9. PREDNISOLONE. [Concomitant]
     Active Substance: PREDNISOLONE
     Indication: SCLEROMALACIA
  10. BCG [Concomitant]
     Active Substance: BCG VACCINE
     Indication: RENAL CELL CARCINOMA
     Route: 043

REACTIONS (1)
  - Disease progression [Recovering/Resolving]
